FAERS Safety Report 6841314-5 (Version None)
Quarter: 2010Q3

REPORT INFORMATION
  Report Type: 
  Country: None (occurrence: None)
  Receive Date: 20100714
  Receipt Date: 20070702
  Transmission Date: 20110219
  Serious: No
  Sender: FDA-Public Use
  Company Number: US-PFIZER INC-2007055683

PATIENT
  Sex: Female
  Weight: 68.181 kg

DRUGS (7)
  1. CHANTIX [Suspect]
     Indication: SMOKING CESSATION THERAPY
     Dates: start: 20070629
  2. ALL OTHER THERAPEUTIC PRODUCTS [Interacting]
  3. OXYCODONE HCL [Concomitant]
     Indication: COMPLEX REGIONAL PAIN SYNDROME
  4. OXYCODONE HCL [Concomitant]
     Indication: BREAKTHROUGH PAIN
  5. TRAZODONE HYDROCHLORIDE [Concomitant]
  6. LUNESTA [Concomitant]
     Indication: INSOMNIA
  7. PRILOSEC [Concomitant]

REACTIONS (2)
  - DRUG INTERACTION [None]
  - SOMNOLENCE [None]
